FAERS Safety Report 18579149 (Version 1)
Quarter: 2020Q4

REPORT INFORMATION
  Report Type: Spontaneous
  Country: US (occurrence: US)
  Receive Date: 20201202
  Receipt Date: 20201202
  Transmission Date: 20210114
  Serious: Yes (Life-Threatening, Hospitalization)
  Sender: FDA-Public Use
  Company Number: None

PATIENT
  Age: 59 Year
  Sex: Male
  Weight: 113.4 kg

DRUGS (2)
  1. ASPIRIN. [Suspect]
     Active Substance: ASPIRIN
     Route: 048
     Dates: start: 20030429, end: 20090918
  2. WARFARIN [Suspect]
     Active Substance: WARFARIN
     Route: 048
     Dates: start: 20090825, end: 20090918

REACTIONS (7)
  - International normalised ratio increased [None]
  - Vascular access complication [None]
  - Anticoagulation drug level below therapeutic [None]
  - Transfusion [None]
  - Haemorrhage intracranial [None]
  - Therapy change [None]
  - Intracranial haematoma [None]

NARRATIVE: CASE EVENT DATE: 20090918
